FAERS Safety Report 20823917 (Version 1)
Quarter: 2022Q2

REPORT INFORMATION
  Report Type: Spontaneous
  Country: ES (occurrence: ES)
  Receive Date: 20220513
  Receipt Date: 20220513
  Transmission Date: 20220721
  Serious: Yes (Hospitalization, Other)
  Sender: FDA-Public Use
  Company Number: None

PATIENT
  Age: 80 Year
  Sex: Male

DRUGS (1)
  1. CAPECITABINE [Suspect]
     Active Substance: CAPECITABINE
     Indication: Colon cancer stage IV
     Dosage: 3600 MG PER DAY FOR 14 DAYS, CORRESPONDING TO 1000 MG/M2 TWICE DAILY EVERY 21 DAYS
     Route: 048
     Dates: start: 201905

REACTIONS (2)
  - Ectropion [Recovered/Resolved]
  - Conjunctivitis [Recovered/Resolved]
